FAERS Safety Report 14502289 (Version 2)
Quarter: 2018Q1

REPORT INFORMATION
  Report Type: Spontaneous
  Country: CA (occurrence: CA)
  Receive Date: 20180208
  Receipt Date: 20180222
  Transmission Date: 20180509
  Serious: Yes (Hospitalization, Other)
  Sender: FDA-Public Use
  Company Number: CA-VISTAPHARM, INC.-VER201801-000326

PATIENT
  Age: 21 Year
  Sex: Female

DRUGS (13)
  1. FURAZEPAM [Concomitant]
     Indication: INSOMNIA
  2. VALPROIC ACID. [Suspect]
     Active Substance: VALPROIC ACID
     Indication: PRODUCT USED FOR UNKNOWN INDICATION
  3. TOPIRAMATE. [Suspect]
     Active Substance: TOPIRAMATE
     Indication: PRODUCT USED FOR UNKNOWN INDICATION
  4. RISPERIDONE. [Concomitant]
     Active Substance: RISPERIDONE
     Indication: PRODUCT USED FOR UNKNOWN INDICATION
  5. CLONAZEPAM. [Concomitant]
     Active Substance: CLONAZEPAM
     Indication: PRODUCT USED FOR UNKNOWN INDICATION
  6. QUETIAPINE. [Concomitant]
     Active Substance: QUETIAPINE
     Indication: PRODUCT USED FOR UNKNOWN INDICATION
  7. BENZTROPINE. [Concomitant]
     Active Substance: BENZTROPINE
     Indication: PRODUCT USED FOR UNKNOWN INDICATION
  8. VALPROIC ACID. [Suspect]
     Active Substance: VALPROIC ACID
     Dosage: DOSE STOPPED
  9. TOPIRAMATE. [Suspect]
     Active Substance: TOPIRAMATE
     Dosage: INCREASED TO 100 MG TWICE DAILY OVER 4 WEEKS DAILY
  10. ETHYNODIAL DIACETATE [Concomitant]
     Indication: PRODUCT USED FOR UNKNOWN INDICATION
     Route: 048
  11. VALPROIC ACID. [Suspect]
     Active Substance: VALPROIC ACID
  12. TOPIRAMATE. [Suspect]
     Active Substance: TOPIRAMATE
  13. ETHINYL ESTRADIOL [Concomitant]
     Active Substance: ETHINYL ESTRADIOL
     Indication: PRODUCT USED FOR UNKNOWN INDICATION
     Route: 048

REACTIONS (2)
  - Hepatotoxicity [Recovering/Resolving]
  - Drug interaction [Unknown]
